FAERS Safety Report 25787347 (Version 1)
Quarter: 2025Q3

REPORT INFORMATION
  Report Type: Spontaneous
  Country: US (occurrence: US)
  Receive Date: 20250910
  Receipt Date: 20250910
  Transmission Date: 20251021
  Serious: Yes (Hospitalization, Other)
  Sender: CHATTEM
  Company Number: US-OPELLA-2025OHG027152

PATIENT
  Age: 78 Year
  Sex: Female

DRUGS (1)
  1. GOLD BOND ORIGINAL STRENGTH [Suspect]
     Active Substance: MENTHOL
     Indication: Product used for unknown indication
     Route: 065

REACTIONS (4)
  - Pleural mesothelioma malignant [Unknown]
  - Epithelioid mesothelioma [Unknown]
  - Barrett^s oesophagus [Unknown]
  - Pleural effusion [Unknown]
